FAERS Safety Report 6739727-5 (Version None)
Quarter: 2010Q2

REPORT INFORMATION
  Report Type: 
  Country: None (occurrence: None)
  Receive Date: 20100525
  Receipt Date: 20100518
  Transmission Date: 20101027
  Serious: Yes (Death, Other)
  Sender: FDA-Public Use
  Company Number: US-BAYER-201010708NA

PATIENT
  Age: 46 Year
  Sex: Male
  Weight: 90 kg

DRUGS (3)
  1. LEVITRA [Suspect]
     Indication: ERECTILE DYSFUNCTION
     Route: 048
     Dates: start: 20071201
  2. NIFEDIPINE [Interacting]
     Indication: DRUG USE FOR UNKNOWN INDICATION
  3. HCTZ [Concomitant]

REACTIONS (2)
  - MITRAL VALVE INCOMPETENCE [None]
  - ROAD TRAFFIC ACCIDENT [None]
